FAERS Safety Report 24791510 (Version 1)
Quarter: 2024Q4

REPORT INFORMATION
  Report Type: Spontaneous
  Country: ZA (occurrence: ZA)
  Receive Date: 20241231
  Receipt Date: 20241231
  Transmission Date: 20250115
  Serious: Yes (Hospitalization)
  Sender: AMGEN
  Company Number: ZA-SERVIER-S24017032

PATIENT
  Age: 58 Year
  Sex: Male

DRUGS (18)
  1. IVABRADINE HYDROCHLORIDE [Suspect]
     Active Substance: IVABRADINE HYDROCHLORIDE
     Indication: Angina pectoris
     Dosage: 5 MG, BID
     Route: 048
  2. GLICLAZIDE [Suspect]
     Active Substance: GLICLAZIDE
     Indication: Diabetes mellitus
     Dosage: 30 MG TAKE  ONE TABLET  TWICE A  DAY
     Route: 048
  3. Optisulin [Concomitant]
     Indication: Diabetes mellitus
     Dosage: UNK UNK, QD
     Route: 058
  4. APIDRA [Concomitant]
     Active Substance: INSULIN GLULISINE
     Indication: Diabetes mellitus
     Dosage: 100 IU  INJECT  THREE  TIMES A  DAY
     Route: 058
  5. GLUCOPHAGE XR [Concomitant]
     Active Substance: METFORMIN HYDROCHLORIDE
     Indication: Diabetes mellitus
     Dosage: 500 MG  TAKE ONE  TABLET  TWICE A  DAY
     Route: 048
  6. ASPIRIN [Concomitant]
     Active Substance: ASPIRIN
     Indication: Anticoagulant therapy
     Dosage: 100 MG, QD
     Route: 048
  7. SACUBITRIL\VALSARTAN [Concomitant]
     Active Substance: SACUBITRIL\VALSARTAN
     Indication: Cardiac failure
     Dosage: 50 MG TAKE  ONE TABLET  TWICE A DAY
     Route: 048
  8. Lipogen [Concomitant]
     Indication: Blood cholesterol
     Dosage: 20 MG TAKE  ONE TABLET  AT NIGHT
     Route: 048
  9. FUROSEMIDE [Concomitant]
     Active Substance: FUROSEMIDE
     Indication: Hypertension
     Dosage: 40 MG TAKE  ONE TABLET  TWICE A  DAY
     Route: 048
  10. Spiractin [Concomitant]
     Indication: Hypertension
     Dosage: 25 MG TAKE  ONE TABLET  DAILY
     Route: 048
  11. CARVEDILOL [Concomitant]
     Active Substance: CARVEDILOL
     Indication: Hypertension
     Dosage: 6.25 MG  TAKE ONE  TABLET  TWICE A  DAY
     Route: 048
  12. ALLOPURINOL [Concomitant]
     Active Substance: ALLOPURINOL
     Indication: Prophylaxis
     Dosage: 300 MG  TAKE ONE  TABLET  DAILY
     Route: 048
  13. ALLOPURINOL [Concomitant]
     Active Substance: ALLOPURINOL
     Indication: Gout
  14. POTASSIUM CHLORIDE [Concomitant]
     Active Substance: POTASSIUM CHLORIDE
     Indication: Hypokalaemia
     Dosage: 600 MG  TAKE ONE  TABLET  DAILY
     Route: 048
  15. DAPAGLIFLOZIN [Concomitant]
     Active Substance: DAPAGLIFLOZIN
     Indication: Diabetes mellitus
     Dosage: 10 MG TAKE  ONE TABLET  DAILY
     Route: 048
  16. PREGABALIN [Concomitant]
     Active Substance: PREGABALIN
     Indication: Epilepsy
     Dosage: 25 MG TAKE  TWO  CAPSULES  TWICE A  DAY
     Route: 048
  17. INSULIN HUMAN [Concomitant]
     Active Substance: INSULIN HUMAN
     Indication: Diabetes mellitus
     Dosage: 100 IU  INJECT 30 UNITS  TWICE A  DAY
     Route: 058
  18. MAGNESIUM CHLORIDE [Concomitant]
     Active Substance: MAGNESIUM CHLORIDE
     Indication: Product used for unknown indication
     Dosage: TAKE ONE  TABLET  DAILY
     Route: 048

REACTIONS (2)
  - Hospitalisation [Recovered/Resolved]
  - Product use issue [Recovered/Resolved]
